FAERS Safety Report 6736776-8 (Version None)
Quarter: 2010Q2

REPORT INFORMATION
  Report Type: 
  Country: None (occurrence: None)
  Receive Date: 20100521
  Receipt Date: 20100510
  Transmission Date: 20101027
  Serious: Yes (Hospitalization)
  Sender: FDA-Public Use
  Company Number: BR-ELI_LILLY_AND_COMPANY-BR201005002451

PATIENT
  Sex: Male
  Weight: 58 kg

DRUGS (5)
  1. FORTEO [Suspect]
     Indication: OSTEOPOROSIS
     Dosage: 20 UG, DAILY (1/D)
     Route: 058
  2. OSCAL D [Concomitant]
     Indication: VITAMIN SUPPLEMENTATION
     Dosage: UNK, DAILY (1/D)
     Route: 065
  3. CENTRUM [Concomitant]
     Dosage: UNK, DAILY (1/D)
     Route: 065
  4. ALENDRONATE SODIUM [Concomitant]
     Indication: PROPHYLAXIS
     Dosage: UNK, WEEKLY (1/W)
     Route: 048
  5. PROLOPA [Concomitant]
     Indication: PARKINSON'S DISEASE
     Dosage: UNK, OTHER
     Route: 048

REACTIONS (2)
  - FALL [None]
  - UPPER LIMB FRACTURE [None]
